FAERS Safety Report 13679904 (Version 2)
Quarter: 2017Q3

REPORT INFORMATION
  Report Type: Spontaneous
  Country: DE (occurrence: DE)
  Receive Date: 20170622
  Receipt Date: 20170726
  Transmission Date: 20171127
  Serious: No
  Sender: FDA-Public Use
  Company Number: DE-BIOGEN-2017BV000096

PATIENT
  Age: 15 Year

DRUGS (1)
  1. ELOCTA [Suspect]
     Active Substance: EFMOROCTOCOG ALFA
     Indication: HAEMOPHILIA
     Route: 042
     Dates: start: 201701

REACTIONS (1)
  - Headache [Unknown]
